FAERS Safety Report 8155080-7 (Version None)
Quarter: 2012Q1

REPORT INFORMATION
  Report Type: 
  Country: None (occurrence: None)
  Receive Date: 20120221
  Receipt Date: 20120210
  Transmission Date: 20120608
  Serious: Yes (Hospitalization)
  Sender: FDA-Public Use
  Company Number: PHHO2012CH002634

PATIENT
  Sex: Male
  Weight: 68.4 kg

DRUGS (7)
  1. NOVOMIX [Concomitant]
     Indication: DIABETES MELLITUS
     Dosage: 28 U, UNK
     Dates: start: 20111129
  2. AMLODIPINE [Suspect]
     Indication: HYPERTENSION
     Dosage: 10 MG, QD
  3. BLINDED NO TREATMENT RECEIVED [Suspect]
     Indication: CARDIOVASCULAR DISORDER
     Dosage: CODE NOT BROKEN
     Route: 048
     Dates: start: 20090517, end: 20111221
  4. METFORMIN HCL [Concomitant]
     Indication: DIABETES MELLITUS
     Dosage: 1 G, BID
  5. BLINDED ALISKIREN [Suspect]
     Indication: CARDIOVASCULAR DISORDER
     Dosage: CODE NOT BROKEN
     Route: 048
     Dates: start: 20090517, end: 20111221
  6. BLINDED PLACEBO [Suspect]
     Indication: CARDIOVASCULAR DISORDER
     Dosage: CODE NOT BROKEN
     Route: 048
     Dates: start: 20090517, end: 20111221
  7. ATACAND HCT [Suspect]
     Indication: HYPERTENSION
     Dosage: 1 X 16/12.5 MG

REACTIONS (1)
  - CONCUSSION [None]
